FAERS Safety Report 5820023-5 (Version None)
Quarter: 2008Q3

REPORT INFORMATION
  Report Type: 
  Country: None (occurrence: None)
  Receive Date: 20080718
  Receipt Date: 20080718
  Transmission Date: 20090109
  Serious: No
  Sender: FDA-Public Use
  Company Number: None

PATIENT
  Age: 73 Year
  Sex: Male
  Weight: 79.3795 kg

DRUGS (1)
  1. CRESTOR [Suspect]
     Dosage: 5MG DAILY PO
     Route: 048
     Dates: start: 20051115, end: 20080715

REACTIONS (1)
  - ARTHRALGIA [None]
